FAERS Safety Report 24272850 (Version 6)
Quarter: 2025Q1

REPORT INFORMATION
  Report Type: Report from Study
  Country: CO (occurrence: CO)
  Receive Date: 20240902
  Receipt Date: 20250330
  Transmission Date: 20250409
  Serious: Yes (Hospitalization)
  Sender: NOVARTIS
  Company Number: CO-002147023-NVSC2024CO139446

PATIENT
  Age: 74 Year
  Sex: Female
  Weight: 45 kg

DRUGS (6)
  1. TASIGNA [Suspect]
     Active Substance: NILOTINIB
     Indication: Chronic myeloid leukaemia
     Dosage: 300 MG, Q12H (EVERY 12 HOURS)
     Route: 048
     Dates: start: 20240617
  2. TASIGNA [Suspect]
     Active Substance: NILOTINIB
     Indication: Neoplasm malignant
     Dosage: 400 MG, Q12H
     Route: 048
     Dates: end: 20240814
  3. TASIGNA [Suspect]
     Active Substance: NILOTINIB
     Dosage: 150 MG, EVERY 12 HOURS
     Route: 048
     Dates: start: 20240814
  4. TASIGNA [Suspect]
     Active Substance: NILOTINIB
     Dosage: 300 MG, Q12H
     Route: 048
  5. TASIGNA [Suspect]
     Active Substance: NILOTINIB
     Dosage: 2 DOSAGE FORM, QD
     Route: 048
  6. TASIGNA [Suspect]
     Active Substance: NILOTINIB
     Route: 048
     Dates: start: 20250323

REACTIONS (18)
  - Chronic myeloid leukaemia [Unknown]
  - Malignant neoplasm progression [Unknown]
  - Pain [Not Recovered/Not Resolved]
  - Arthralgia [Not Recovered/Not Resolved]
  - Musculoskeletal stiffness [Unknown]
  - Coccydynia [Unknown]
  - Pain in extremity [Not Recovered/Not Resolved]
  - Night sweats [Not Recovered/Not Resolved]
  - Pigmentation disorder [Not Recovered/Not Resolved]
  - Neck pain [Not Recovered/Not Resolved]
  - Headache [Not Recovered/Not Resolved]
  - Pain of skin [Unknown]
  - Weight decreased [Unknown]
  - Scratch [Unknown]
  - Asthenia [Unknown]
  - Illness [Unknown]
  - Off label use [Not Recovered/Not Resolved]
  - Incorrect dose administered [Unknown]

NARRATIVE: CASE EVENT DATE: 20240601
